FAERS Safety Report 14346543 (Version 1)
Quarter: 2018Q1

REPORT INFORMATION
  Report Type: Spontaneous
  Country: BR (occurrence: BR)
  Receive Date: 20180103
  Receipt Date: 20180103
  Transmission Date: 20180509
  Serious: Yes (Other)
  Sender: FDA-Public Use
  Company Number: BR-PFIZER INC-2017554367

PATIENT
  Sex: Female

DRUGS (1)
  1. DETRUSITOL [Suspect]
     Active Substance: TOLTERODINE TARTRATE

REACTIONS (2)
  - Pain [Unknown]
  - Haemorrhage [Unknown]
